FAERS Safety Report 23419829 (Version 1)
Quarter: 2024Q1

REPORT INFORMATION
  Report Type: Report from Study
  Country: MX (occurrence: MX)
  Receive Date: 20240119
  Receipt Date: 20240119
  Transmission Date: 20240410
  Serious: Yes (Other)
  Sender: FDA-Public Use
  Company Number: MX-JNJFOC-20240138286

PATIENT
  Age: 56 Year
  Sex: Female
  Weight: 54 kg

DRUGS (3)
  1. SIMPONI [Suspect]
     Active Substance: GOLIMUMAB
     Indication: Psoriatic arthropathy
     Route: 058
     Dates: start: 20231015
  2. FOLIC ACID [Concomitant]
     Active Substance: FOLIC ACID
  3. MACRODANTIN [Concomitant]
     Active Substance: NITROFURANTOIN

REACTIONS (1)
  - Thyroid cancer [Not Recovered/Not Resolved]
